FAERS Safety Report 23471224 (Version 1)
Quarter: 2024Q1

REPORT INFORMATION
  Report Type: Spontaneous
  Country: GB (occurrence: GB)
  Receive Date: 20240202
  Receipt Date: 20240202
  Transmission Date: 20240410
  Serious: Yes (Other)
  Sender: FDA-Public Use
  Company Number: GB-ELI_LILLY_AND_COMPANY-GB202401014578

PATIENT
  Age: 45 Year
  Sex: Female
  Weight: 84 kg

DRUGS (5)
  1. TRULICITY [Suspect]
     Active Substance: DULAGLUTIDE
     Indication: Product used for unknown indication
     Dosage: 0.75 MG, WEEKLY (1/W)
     Route: 058
     Dates: start: 20231221, end: 20240117
  2. SERTRALINE [Concomitant]
     Active Substance: SERTRALINE HYDROCHLORIDE
     Indication: Product used for unknown indication
     Dosage: 1 DOSAGE FORM, DAILY
  3. ATORVASTATIN [Concomitant]
     Active Substance: ATORVASTATIN
     Indication: Product used for unknown indication
  4. CYCLIZINE [Concomitant]
     Active Substance: CYCLIZINE
     Indication: Type 2 diabetes mellitus
     Dosage: 1 DOSAGE FORM, DAILY (PRN)
     Dates: start: 20240116
  5. METFORMIN [Concomitant]
     Active Substance: METFORMIN HYDROCHLORIDE
     Indication: Product used for unknown indication
     Dosage: 1 G, DAILY

REACTIONS (9)
  - Acute kidney injury [Unknown]
  - Headache [Unknown]
  - Malaise [Unknown]
  - Nausea [Unknown]
  - Vomiting [Unknown]
  - Diarrhoea [Unknown]
  - Diabetic foot [Unknown]
  - Urine ketone body present [Unknown]
  - Glycosuria [Unknown]

NARRATIVE: CASE EVENT DATE: 20240104
